FAERS Safety Report 8484194-7 (Version None)
Quarter: 2012Q3

REPORT INFORMATION
  Report Type: 
  Country: None (occurrence: None)
  Receive Date: 20120703
  Receipt Date: 20120628
  Transmission Date: 20120928
  Serious: Yes (Other)
  Sender: FDA-Public Use
  Company Number: GB-ROXANE LABORATORIES, INC.-2012-EU-03369GD

PATIENT
  Age: 52 Year
  Sex: Female

DRUGS (2)
  1. MEMANTINE HCL [Suspect]
     Indication: COMPLEX REGIONAL PAIN SYNDROME
     Dosage: 40 MG
     Route: 048
  2. MORPHINE [Suspect]
     Indication: COMPLEX REGIONAL PAIN SYNDROME
     Dosage: 30 MG
     Route: 048

REACTIONS (4)
  - COGNITIVE DISORDER [None]
  - COMMUNICATION DISORDER [None]
  - DEPRESSION [None]
  - IMPAIRED DRIVING ABILITY [None]
